FAERS Safety Report 20360134 (Version 1)
Quarter: 2022Q1

REPORT INFORMATION
  Report Type: Spontaneous
  Country: FR (occurrence: FR)
  Receive Date: 20220121
  Receipt Date: 20220121
  Transmission Date: 20220423
  Serious: Yes (Hospitalization)
  Sender: FDA-Public Use
  Company Number: None

PATIENT
  Age: 62 Year
  Sex: Female
  Weight: 45 kg

DRUGS (2)
  1. FULVESTRANT [Suspect]
     Active Substance: FULVESTRANT
     Indication: Breast cancer
     Dosage: 500 MG PER MONTH
     Route: 030
     Dates: start: 20210510, end: 20210929
  2. PALBOCICLIB [Concomitant]
     Active Substance: PALBOCICLIB
     Dosage: 100 MG, CAPSULE
     Route: 048
     Dates: start: 20210510, end: 20210929

REACTIONS (2)
  - Cardiogenic shock [Not Recovered/Not Resolved]
  - Cardiac failure [Not Recovered/Not Resolved]

NARRATIVE: CASE EVENT DATE: 20210929
